FAERS Safety Report 6651964-7 (Version None)
Quarter: 2010Q1

REPORT INFORMATION
  Report Type: 
  Country: None (occurrence: None)
  Receive Date: 20100325
  Receipt Date: 20090421
  Transmission Date: 20100710
  Serious: Yes (Life-Threatening, Hospitalization)
  Sender: FDA-Public Use
  Company Number: US-SANOFI-AVENTIS-F01200700981

PATIENT
  Age: 68 Year
  Sex: Male
  Weight: 101.8 kg

DRUGS (7)
  1. OXALIPLATIN [Suspect]
     Dosage: UNIT DOSE: 100 MG/M2
     Route: 042
     Dates: start: 20070523, end: 20070726
  2. DOCETAXEL [Suspect]
     Dosage: UNIT DOSE: 70 MG/M2
     Route: 042
     Dates: start: 20070726, end: 20070726
  3. BEVACIZUMAB [Suspect]
     Dosage: UNIT DOSE: 15 MG/KG
     Route: 042
     Dates: start: 20070705, end: 20070705
  4. LISINOPRIL [Concomitant]
  5. METHADONE [Concomitant]
  6. LYRICA [Concomitant]
  7. NEULASTA [Concomitant]
     Dosage: DOSE TEXT: 6 MG EACH CYCLE

REACTIONS (2)
  - HYPONATRAEMIA [None]
  - LARGE INTESTINE PERFORATION [None]
